FAERS Safety Report 24220504 (Version 1)
Quarter: 2024Q3

REPORT INFORMATION
  Report Type: Spontaneous
  Country: NL (occurrence: NL)
  Receive Date: 20240818
  Receipt Date: 20240818
  Transmission Date: 20241016
  Serious: Yes (Hospitalization, Other)
  Sender: AUROBINDO
  Company Number: NL-LRB-00995906

PATIENT
  Age: 72 Year
  Sex: Male
  Weight: 6 kg

DRUGS (1)
  1. OMEPRAZOLE [Suspect]
     Active Substance: OMEPRAZOLE
     Indication: Regurgitation
     Dosage: 80 MILLIGRAM, ONCE A DAY (2 PIECES ONCE PER DAY)
     Route: 065
     Dates: start: 20200112, end: 20240307

REACTIONS (4)
  - Delirium [Recovering/Resolving]
  - Hypocalcaemia [Recovering/Resolving]
  - Hypomagnesaemia [Recovering/Resolving]
  - Muscular weakness [Recovering/Resolving]
